FAERS Safety Report 11730729 (Version 1)
Quarter: 2015Q4

REPORT INFORMATION
  Report Type: Spontaneous
  Country: US (occurrence: US)
  Receive Date: 20151110
  Receipt Date: 20151110
  Transmission Date: 20160304
  Serious: No
  Sender: FDA-Public Use
  Company Number: US-ELI_LILLY_AND_COMPANY-US201201009313

PATIENT
  Sex: Female

DRUGS (2)
  1. NEXIUM [Concomitant]
     Active Substance: ESOMEPRAZOLE MAGNESIUM
     Indication: GASTROOESOPHAGEAL REFLUX DISEASE
  2. FORTEO [Suspect]
     Active Substance: TERIPARATIDE
     Indication: OSTEOPOROSIS
     Dosage: 20 UG, QD
     Dates: start: 20120116, end: 20120203

REACTIONS (9)
  - Arthralgia [Unknown]
  - Muscle spasms [Unknown]
  - Adverse event [Unknown]
  - Nausea [Recovering/Resolving]
  - Dyspepsia [Unknown]
  - Gastrooesophageal reflux disease [Unknown]
  - Pain in jaw [Unknown]
  - Sleep disorder due to a general medical condition [Unknown]
  - Pain [Unknown]
